FAERS Safety Report 16789189 (Version 2)
Quarter: 2019Q4

REPORT INFORMATION
  Report Type: Report from Study
  Country: US (occurrence: US)
  Receive Date: 20190910
  Receipt Date: 20191004
  Transmission Date: 20200122
  Serious: Yes (Other)
  Sender: FDA-Public Use
  Company Number: US-ALVOGEN-2019-ALVOGEN-101290

PATIENT
  Age: 64 Year
  Sex: Female

DRUGS (1)
  1. BOSENTAN. [Suspect]
     Active Substance: BOSENTAN
     Indication: PULMONARY ARTERIAL HYPERTENSION
     Dosage: 2 TIMES
     Route: 048
     Dates: start: 20190724

REACTIONS (3)
  - Atrial fibrillation [Not Recovered/Not Resolved]
  - Gout [Unknown]
  - Swelling [Not Recovered/Not Resolved]
